FAERS Safety Report 9457513 (Version 1)
Quarter: 2013Q3

REPORT INFORMATION
  Report Type: Spontaneous
  Country: CZ (occurrence: None)
  Receive Date: 20130812
  Receipt Date: 20130812
  Transmission Date: 20140515
  Serious: Yes (Hospitalization)
  Sender: FDA-Public Use
  Company Number: AG-2012-1632

PATIENT
  Age: 77 Year
  Sex: Female
  Weight: 63 kg

DRUGS (2)
  1. CHLORAMBUCIL [Suspect]
     Indication: CHRONIC LYMPHOCYTIC LEUKAEMIA
     Dosage: DAY 1, DAY 15.
     Route: 048
  2. OBINTUZUMAB [Suspect]
     Indication: CHRONIC LYMPHOCYTIC LEUKAEMIA
     Route: 042
     Dates: start: 20120523, end: 20121002

REACTIONS (3)
  - Renal failure [None]
  - Dehydration [None]
  - Neutropenia [None]
